FAERS Safety Report 9696180 (Version 2)
Quarter: 2014Q1

REPORT INFORMATION
  Report Type: Report from Study
  Country: CA (occurrence: CA)
  Receive Date: 20131119
  Receipt Date: 20140321
  Transmission Date: 20141002
  Serious: Yes (Congenital Anomaly)
  Sender: FDA-Public Use
  Company Number: CA-UCBSA-102166

PATIENT
  Age: 0 None
  Sex: Female
  Weight: 3.69 kg

DRUGS (3)
  1. CIMZIA [Suspect]
     Indication: RHEUMATOID ARTHRITIS
     Route: 064
     Dates: start: 20121205, end: 20121216
  2. CIMZIA [Suspect]
     Indication: RHEUMATOID ARTHRITIS
     Route: 064
     Dates: start: 20130402, end: 2013
  3. L-THYROXINE [Concomitant]
     Indication: HYPOTHYROIDISM
     Route: 064
     Dates: end: 20130912

REACTIONS (2)
  - Polydactyly [Unknown]
  - Foetal exposure during pregnancy [Recovered/Resolved]
